FAERS Safety Report 5777956-8 (Version None)
Quarter: 2008Q2

REPORT INFORMATION
  Report Type: 
  Country: None (occurrence: None)
  Receive Date: 20080618
  Receipt Date: 20080618
  Transmission Date: 20081010
  Serious: No
  Sender: FDA-Public Use
  Company Number: None

PATIENT
  Sex: Male
  Weight: 104.7809 kg

DRUGS (1)
  1. VICOPROFEN [Suspect]
     Indication: BACK PAIN
     Dosage: 7.5/200 THREE A DAY ORAL
     Route: 048
     Dates: start: 20050101, end: 20070101

REACTIONS (2)
  - DRUG EFFECT DECREASED [None]
  - PHARMACEUTICAL PRODUCT COMPLAINT [None]
